FAERS Safety Report 15783638 (Version 1)
Quarter: 2019Q1

REPORT INFORMATION
  Report Type: Spontaneous
  Country: US (occurrence: US)
  Receive Date: 20190102
  Receipt Date: 20190102
  Transmission Date: 20190417
  Serious: No
  Sender: FDA-Public Use
  Company Number: US-009507513-1812USA009986

PATIENT
  Age: 69 Year
  Sex: Female

DRUGS (1)
  1. PROVENTIL [Suspect]
     Active Substance: ALBUTEROL
     Dosage: ^2 PUFFS FOUR TIMES A DAY^
     Dates: start: 20181117, end: 2018

REACTIONS (4)
  - Product dose omission [Unknown]
  - Tongue disorder [Unknown]
  - Nausea [Unknown]
  - Product quality issue [Unknown]

NARRATIVE: CASE EVENT DATE: 2018
